FAERS Safety Report 16978585 (Version 4)
Quarter: 2020Q3

REPORT INFORMATION
  Report Type: Spontaneous
  Country: US (occurrence: US)
  Receive Date: 20191031
  Receipt Date: 20200922
  Transmission Date: 20201102
  Serious: Yes (Other)
  Sender: FDA-Public Use
  Company Number: US-GILEAD-2019-0434759

PATIENT
  Age: 53 Year
  Sex: Male

DRUGS (1)
  1. TRUVADA [Suspect]
     Active Substance: EMTRICITABINE\TENOFOVIR DISOPROXIL FUMARATE
     Indication: HIV INFECTION
     Dosage: UNK
     Route: 048
     Dates: start: 2007, end: 2014

REACTIONS (19)
  - Anhedonia [Not Recovered/Not Resolved]
  - Pain [Not Recovered/Not Resolved]
  - Proteinuria [Not Recovered/Not Resolved]
  - Osteopenia [Not Recovered/Not Resolved]
  - Tooth disorder [Not Recovered/Not Resolved]
  - Renal failure [Not Recovered/Not Resolved]
  - Back pain [Not Recovered/Not Resolved]
  - Economic problem [Not Recovered/Not Resolved]
  - Tooth loss [Not Recovered/Not Resolved]
  - Arthritis [Not Recovered/Not Resolved]
  - Osteoporosis [Not Recovered/Not Resolved]
  - Emotional distress [Not Recovered/Not Resolved]
  - Nephrolithiasis [Not Recovered/Not Resolved]
  - Anxiety [Not Recovered/Not Resolved]
  - Glycosuria [Not Recovered/Not Resolved]
  - Chronic kidney disease-mineral and bone disorder [Not Recovered/Not Resolved]
  - Chronic kidney disease [Not Recovered/Not Resolved]
  - Musculoskeletal chest pain [Not Recovered/Not Resolved]
  - Bone density decreased [Not Recovered/Not Resolved]

NARRATIVE: CASE EVENT DATE: 20120109
